FAERS Safety Report 4919791-6 (Version None)
Quarter: 2006Q1

REPORT INFORMATION
  Report Type: 
  Country: None (occurrence: None)
  Receive Date: 20060216
  Receipt Date: 20060130
  Transmission Date: 20060701
  Serious: Yes (Death)
  Sender: FDA-Public Use
  Company Number: JP200601003792

PATIENT
  Age: 46 Year
  Sex: Female

DRUGS (9)
  1. HUMALOG [Suspect]
     Indication: DIABETES MELLITUS
     Dosage: SEE IMAGE
     Dates: start: 20040501, end: 20040713
  2. HUMALOG [Suspect]
     Indication: DIABETES MELLITUS
     Dosage: SEE IMAGE
     Dates: start: 20040714
  3. HUMACART NPH (HUMAN INSULIN (RDNA ORIGIN)NPH [Suspect]
     Indication: DIABETES MELLITUS
     Dosage: SEE IMAGE
     Dates: start: 20040501, end: 20040713
  4. HUMACART NPH (HUMAN INSULIN (RDNA ORIGIN)NPH [Suspect]
     Indication: DIABETES MELLITUS
     Dosage: SEE IMAGE
     Dates: start: 20040714
  5. DIOVAN [Concomitant]
  6. CARVEDILOL [Concomitant]
  7. CONIEL (BENIDIPINE HYDROCHLORIDE) [Concomitant]
  8. BLOPRESS  /GFR/(CANDESARTAN CILEXETIL) [Concomitant]
  9. LOCHOL (FLUVASTATIN SODIUM) [Concomitant]

REACTIONS (14)
  - AORTIC DISSECTION [None]
  - ARTERIOSCLEROSIS [None]
  - CARDIO-RESPIRATORY ARREST [None]
  - DIABETES MELLITUS INADEQUATE CONTROL [None]
  - DIARRHOEA [None]
  - DIZZINESS [None]
  - FALL [None]
  - GASTRIC MUCOSAL LESION [None]
  - HEADACHE [None]
  - HYPERTENSION [None]
  - HYPOGLYCAEMIA [None]
  - MALAISE [None]
  - NAUSEA [None]
  - ORAL INTAKE REDUCED [None]
